FAERS Safety Report 9012575 (Version 2)
Quarter: 2013Q1

REPORT INFORMATION
  Report Type: Spontaneous
  Country: IT (occurrence: IT)
  Receive Date: 20130114
  Receipt Date: 20130131
  Transmission Date: 20140127
  Serious: Yes (Other)
  Sender: FDA-Public Use
  Company Number: IT-PFIZER INC-2013015612

PATIENT
  Age: 62 Year
  Sex: Female

DRUGS (1)
  1. XANAX [Suspect]
     Dosage: 10 ML, SINGLE
     Route: 048
     Dates: start: 20120210, end: 20120210

REACTIONS (2)
  - Psychomotor skills impaired [Unknown]
  - Drug abuse [Unknown]
